FAERS Safety Report 10083387 (Version 2)
Quarter: 2014Q4

REPORT INFORMATION
  Report Type: Spontaneous
  Country: IT (occurrence: IT)
  Receive Date: 20140417
  Receipt Date: 20141127
  Transmission Date: 20150528
  Serious: Yes (Hospitalization)
  Sender: FDA-Public Use
  Company Number: IT-ROCHE-1382846

PATIENT
  Age: 78 Year
  Sex: Male
  Weight: 69 kg

DRUGS (4)
  1. XELODA [Suspect]
     Active Substance: CAPECITABINE
     Indication: COLON CANCER METASTATIC
     Route: 048
     Dates: start: 20140211, end: 20140304
  2. AVASTIN [Suspect]
     Active Substance: BEVACIZUMAB
     Indication: COLON CANCER STAGE IV
  3. XELODA [Suspect]
     Active Substance: CAPECITABINE
     Indication: COLON CANCER STAGE IV
  4. AVASTIN [Suspect]
     Active Substance: BEVACIZUMAB
     Indication: COLON CANCER METASTATIC
     Route: 042
     Dates: start: 20140211, end: 20140304

REACTIONS (7)
  - Stomatitis [Recovering/Resolving]
  - Asthenia [Recovering/Resolving]
  - Vomiting [Recovering/Resolving]
  - Mucosal inflammation [Recovering/Resolving]
  - Hypokalaemia [Recovering/Resolving]
  - Wernicke-Korsakoff syndrome [Recovering/Resolving]
  - Diarrhoea [Recovering/Resolving]

NARRATIVE: CASE EVENT DATE: 20140325
